FAERS Safety Report 6557856-6 (Version None)
Quarter: 2010Q1

REPORT INFORMATION
  Report Type: 
  Country: None (occurrence: None)
  Receive Date: 20100128
  Receipt Date: 20100128
  Transmission Date: 20100710
  Serious: No
  Sender: FDA-Public Use
  Company Number: None

PATIENT
  Age: 53 Year
  Sex: Female

DRUGS (2)
  1. MYSOLINE [Suspect]
  2. DILANTIN [Concomitant]

REACTIONS (2)
  - DRUG TOXICITY [None]
  - PRODUCT SUBSTITUTION ISSUE [None]
